FAERS Safety Report 19874058 (Version 2)
Quarter: 2021Q3

REPORT INFORMATION
  Report Type: Spontaneous
  Country: US (occurrence: US)
  Receive Date: 20210922
  Receipt Date: 20210924
  Transmission Date: 20211014
  Serious: No
  Sender: FDA-Public Use
  Company Number: US-SA-2021SA310349

PATIENT
  Age: 39 Year
  Sex: Male

DRUGS (1)
  1. DUPIXENT [Suspect]
     Active Substance: DUPILUMAB
     Indication: NASAL POLYPS
     Dosage: 300 MG, QOW
     Route: 058
     Dates: start: 202106, end: 202108

REACTIONS (10)
  - Headache [Unknown]
  - Eye irritation [Unknown]
  - Musculoskeletal stiffness [Unknown]
  - Adverse drug reaction [Unknown]
  - Tremor [Unknown]
  - Neck pain [Unknown]
  - Dysuria [Unknown]
  - Gait disturbance [Unknown]
  - Fatigue [Unknown]
  - Pain [Unknown]

NARRATIVE: CASE EVENT DATE: 2021
